FAERS Safety Report 4323336-1 (Version None)
Quarter: 2004Q1

REPORT INFORMATION
  Report Type: 
  Country: None (occurrence: None)
  Receive Date: 20040323
  Receipt Date: 20040323
  Transmission Date: 20041129
  Serious: Yes (Other)
  Sender: FDA-Public Use
  Company Number: None

PATIENT
  Age: 80 Year
  Sex: Male
  Weight: 68.9 kg

DRUGS (5)
  1. GATIFLOXACIN [Suspect]
     Indication: URINARY TRACT INFECTION
     Dosage: 400MG DAILY IV PIGGY
     Route: 042
     Dates: start: 20030901, end: 20030902
  2. LOVASTATIN [Concomitant]
  3. TERAZOSIN HCL [Concomitant]
  4. FINASTERIDE [Concomitant]
  5. LOVASTATIN [Concomitant]

REACTIONS (1)
  - RASH [None]
